FAERS Safety Report 9028801 (Version 1)
Quarter: 2013Q1

REPORT INFORMATION
  Report Type: Spontaneous
  Country: US (occurrence: US)
  Receive Date: 20130124
  Receipt Date: 20130124
  Transmission Date: 20140127
  Serious: Yes (Other)
  Sender: FDA-Public Use
  Company Number: US-BAYER-2013-008104

PATIENT
  Age: 41 Year
  Sex: Female
  Weight: 99.77 kg

DRUGS (4)
  1. YASMIN [Suspect]
  2. OCELLA [Suspect]
  3. AMOXICILLIN [Concomitant]
     Dosage: 500 MG, TAKE FOUR CAPSULES
     Route: 048
  4. VITAMINS [Concomitant]

REACTIONS (1)
  - Deep vein thrombosis [Recovering/Resolving]
